FAERS Safety Report 21572777 (Version 1)
Quarter: 2022Q4

REPORT INFORMATION
  Report Type: Spontaneous
  Country: GB (occurrence: GB)
  Receive Date: 20221109
  Receipt Date: 20221109
  Transmission Date: 20230113
  Serious: Yes (Hospitalization, Other)
  Sender: FDA-Public Use
  Company Number: GB-Oracle-2014SP001617

PATIENT
  Age: 60 Year
  Sex: Female

DRUGS (13)
  1. PEMETREXED [Suspect]
     Active Substance: PEMETREXED
     Indication: Non-small cell lung cancer
     Dosage: 500 MG/M2, CYCLICAL (ONCE EVERY 3 WEEKS)
     Route: 065
     Dates: start: 20131203
  2. PEMETREXED [Suspect]
     Active Substance: PEMETREXED
     Dosage: 500 MG/M2, CYCLICAL (ONCE EVERY 3 WEEKS)
     Route: 065
     Dates: start: 20131224
  3. PEMETREXED [Suspect]
     Active Substance: PEMETREXED
     Dosage: 500 MG/M2, CYCLICAL (ONCE EVERY 3 WEEKS)
     Route: 042
     Dates: start: 20140114, end: 20140114
  4. CISPLATIN [Suspect]
     Active Substance: CISPLATIN
     Indication: Non-small cell lung cancer
     Dosage: UNK, CYCLICAL (ONCE EVERY 3 WEEKS)
     Route: 065
     Dates: start: 20131203
  5. CISPLATIN [Suspect]
     Active Substance: CISPLATIN
     Dosage: UNK, CYCLICAL (ONCE EVERY 3 WEEKS)
     Route: 065
     Dates: start: 20131224
  6. CISPLATIN [Suspect]
     Active Substance: CISPLATIN
     Dosage: 75 MG/M2, CYCLICAL (ONCE EVERY 3 WEEKS)
     Route: 042
     Dates: start: 20140114, end: 20140114
  7. HYDROXOCOBALAMIN [Suspect]
     Active Substance: HYDROXOCOBALAMIN
     Indication: Non-small cell lung cancer
     Dosage: UNK, CYCLICAL
     Route: 065
     Dates: start: 20131203
  8. HYDROXOCOBALAMIN [Suspect]
     Active Substance: HYDROXOCOBALAMIN
     Dosage: 1000 UG, CYCLICAL
     Route: 030
     Dates: start: 20140114, end: 20140114
  9. APREPITANT [Concomitant]
     Active Substance: APREPITANT
     Indication: Non-small cell lung cancer
     Dosage: 125 MG, UNKNOWN
     Route: 048
     Dates: start: 20131203
  10. CYCLIZINE [Concomitant]
     Active Substance: CYCLIZINE
     Indication: Non-small cell lung cancer
     Dosage: 50 MG, UNKNOWN
     Route: 048
     Dates: start: 20131203
  11. DEXAMETHASONE [Concomitant]
     Active Substance: DEXAMETHASONE
     Indication: Non-small cell lung cancer
     Dosage: 4 MG, BID
     Route: 048
     Dates: start: 20131203
  12. LEUCOVORIN [Concomitant]
     Active Substance: LEUCOVORIN
     Indication: Non-small cell lung cancer
     Dosage: 400 UG, DAILY
     Route: 048
     Dates: start: 20131203
  13. ONDANSETRON [Concomitant]
     Active Substance: ONDANSETRON
     Indication: Non-small cell lung cancer
     Dosage: 8 MG, UNKNOWN
     Route: 048
     Dates: start: 20131203

REACTIONS (5)
  - Capillary leak syndrome [Recovered/Resolved]
  - Swelling face [Recovered/Resolved]
  - Peripheral swelling [Recovered/Resolved]
  - Chest discomfort [Recovered/Resolved]
  - Rash [Recovered/Resolved]

NARRATIVE: CASE EVENT DATE: 20140115
